FAERS Safety Report 9197685 (Version 1)
Quarter: 2013Q1

REPORT INFORMATION
  Report Type: Spontaneous
  Country: US (occurrence: US)
  Receive Date: 20130328
  Receipt Date: 20130328
  Transmission Date: 20140127
  Serious: No
  Sender: FDA-Public Use
  Company Number: US-ASTRAZENECA-2013SE15943

PATIENT
  Age: 51 Year
  Sex: Male
  Weight: 103.4 kg

DRUGS (3)
  1. SEROQUEL [Suspect]
     Indication: MANIA
     Route: 048
  2. SEROQUEL [Suspect]
     Indication: MANIA
     Route: 048
     Dates: start: 201303
  3. LAMICTAL [Concomitant]

REACTIONS (3)
  - Abnormal weight gain [Unknown]
  - Therapeutic response decreased [Unknown]
  - Intentional drug misuse [Unknown]
